FAERS Safety Report 20002537 (Version 3)
Quarter: 2021Q4

REPORT INFORMATION
  Report Type: Spontaneous
  Country: US (occurrence: US)
  Receive Date: 20211027
  Receipt Date: 20211027
  Transmission Date: 20220304
  Serious: No
  Sender: FDA-Public Use
  Company Number: US-BOEHRINGERINGELHEIM-2021-BI-134395

PATIENT
  Age: 74 Year
  Sex: Male

DRUGS (14)
  1. QUINAPRIL [Concomitant]
     Active Substance: QUINAPRIL
     Indication: Hypertension
     Dosage: 40 MG ONCE PER DAY
     Dates: start: 1989
  2. QUINAPRIL [Concomitant]
     Active Substance: QUINAPRIL
     Indication: Type 2 diabetes mellitus
  3. AMLODIPINE [Concomitant]
     Active Substance: AMLODIPINE BESYLATE
     Indication: Hypertension
     Dosage: 5 MG ONCE DAILY
     Dates: start: 2006
  4. METFORMIN [Concomitant]
     Active Substance: METFORMIN HYDROCHLORIDE
     Indication: Type 2 diabetes mellitus
     Dosage: 500 MG ONCE DAILY
     Dates: start: 2011
  5. OZEMPIC [Concomitant]
     Active Substance: SEMAGLUTIDE
     Indication: Type 2 diabetes mellitus
     Dosage: 1 MG ONCE WEEKLY
     Dates: start: 2020
  6. CRESTOR [Concomitant]
     Active Substance: ROSUVASTATIN CALCIUM
     Indication: Type 2 diabetes mellitus
     Dosage: 40 MG ONCE DAILY
  7. CRESTOR [Concomitant]
     Active Substance: ROSUVASTATIN CALCIUM
     Indication: Blood cholesterol increased
  8. PANTOPRAZOLE [Concomitant]
     Active Substance: PANTOPRAZOLE
     Indication: Gastrooesophageal reflux disease
     Dosage: 40 MG ONCE DAILY
     Dates: start: 2006
  9. MULTIVITAMINS WITH IRON [ASCORBIC ACID;CYANOCOBALAMIN;ERGOCALCIFEROL;I [Concomitant]
     Indication: Product used for unknown indication
     Dosage: ONE TABLET ONCE DAILY
  10. ASPIRIN [Concomitant]
     Active Substance: ASPIRIN
     Indication: Product used for unknown indication
     Dosage: 81 MG ONCE DAILY
  11. BRILINTA [Concomitant]
     Active Substance: TICAGRELOR
     Indication: Vascular stent thrombosis
     Dosage: 90 MG TWICE PER DAY
     Dates: start: 202101
  12. CIALIS [Concomitant]
     Active Substance: TADALAFIL
     Indication: Product used for unknown indication
     Dosage: 5 MG ONCE DAILY
  13. JARDIANCE [Suspect]
     Active Substance: EMPAGLIFLOZIN
     Indication: Product used for unknown indication
     Dosage: 1 TABLET DAILY
  14. JARDIANCE [Suspect]
     Active Substance: EMPAGLIFLOZIN

REACTIONS (3)
  - Nocturia [Not Recovered/Not Resolved]
  - Micturition urgency [Not Recovered/Not Resolved]
  - Urine analysis abnormal [Unknown]

NARRATIVE: CASE EVENT DATE: 20211011
